FAERS Safety Report 9499059 (Version 1)
Quarter: 2013Q3

REPORT INFORMATION
  Report Type: Spontaneous
  Country: ZA (occurrence: ZA)
  Receive Date: 20130904
  Receipt Date: 20130904
  Transmission Date: 20140515
  Serious: Yes (Other)
  Sender: FDA-Public Use
  Company Number: ZA-GILEAD-2013-0082332

PATIENT
  Age: 24 Year
  Sex: Female

DRUGS (13)
  1. VIREAD [Suspect]
     Indication: HIV INFECTION
     Dosage: UNK
     Dates: start: 2012
  2. DOXORUBICIN [Suspect]
     Indication: KAPOSI^S SARCOMA
     Dosage: UNK
     Dates: start: 201202
  3. DOXORUBICIN [Suspect]
     Dosage: UNK
  4. VINCRISTINE [Suspect]
     Indication: KAPOSI^S SARCOMA
     Dosage: UNK
     Dates: start: 201202
  5. VINCRISTINE [Suspect]
     Dosage: UNK
  6. EFAVIRENZ [Concomitant]
     Indication: HIV INFECTION
     Dosage: UNK
     Dates: start: 2012
  7. LAMIVUDINE [Concomitant]
     Indication: HIV INFECTION
     Dosage: UNK
     Dates: start: 2012
  8. BLEOMYCIN [Concomitant]
     Dosage: UNK
  9. BLEOMYCIN [Concomitant]
     Dosage: UNK
  10. RIFAFOUR [Concomitant]
     Indication: TUBERCULOSIS
     Dosage: UNK
  11. TRIMETHOPRIM SULFAMETHOXAZOLE [Concomitant]
     Indication: ANTIFUNGAL PROPHYLAXIS
     Dosage: UNK
     Dates: start: 201206
  12. HEPARIN [Concomitant]
     Route: 058
  13. CLARITHROMYCIN [Concomitant]
     Dosage: UNK
     Route: 042
     Dates: start: 2012

REACTIONS (1)
  - Stillbirth [Recovered/Resolved]
